FAERS Safety Report 21458010 (Version 1)
Quarter: 2022Q4

REPORT INFORMATION
  Report Type: Spontaneous
  Country: US (occurrence: US)
  Receive Date: 20221014
  Receipt Date: 20221014
  Transmission Date: 20230112
  Serious: No
  Sender: FDA-Public Use
  Company Number: US-JNJFOC-20220953320

PATIENT
  Sex: Female

DRUGS (2)
  1. IMODIUM [Suspect]
     Active Substance: LOPERAMIDE HYDROCHLORIDE
     Indication: Diarrhoea
     Dosage: EVERY TWELVE HOURS, ONE CAPSULE
     Route: 065
  2. PEPTO-BISMOL [Concomitant]
     Active Substance: BISMUTH SUBSALICYLATE
     Indication: Diarrhoea
     Dosage: STARTED IN MAY/JUN 2021
     Route: 065

REACTIONS (1)
  - Incorrect dose administered [Unknown]
